FAERS Safety Report 9375898 (Version 1)
Quarter: 2013Q2

REPORT INFORMATION
  Report Type: Spontaneous
  Country: US (occurrence: US)
  Receive Date: 20130628
  Receipt Date: 20130628
  Transmission Date: 20140414
  Serious: Yes (Other)
  Sender: FDA-Public Use
  Company Number: US-ASTRAZENECA-2013SE48408

PATIENT
  Age: 83 Year
  Sex: Female
  Weight: 83.9 kg

DRUGS (3)
  1. SEROQUEL [Suspect]
     Route: 048
     Dates: start: 2013
  2. SEROQUEL [Suspect]
     Route: 048
  3. MEDICATION FOR MEMORY LOSS [Concomitant]

REACTIONS (7)
  - Amnesia [Unknown]
  - Activities of daily living impaired [Unknown]
  - Dysstasia [Unknown]
  - Reflexes abnormal [Unknown]
  - Headache [Unknown]
  - Feeling abnormal [Unknown]
  - Dizziness [Unknown]
